FAERS Safety Report 8384363-0 (Version None)
Quarter: 2012Q2

REPORT INFORMATION
  Report Type: 
  Country: None (occurrence: None)
  Receive Date: 20120524
  Receipt Date: 20120516
  Transmission Date: 20120825
  Serious: Yes (Other)
  Sender: FDA-Public Use
  Company Number: US-VERTEX PHARMACEUTICALS INC.-AE-2012-004593

PATIENT
  Sex: Male
  Weight: 63.56 kg

DRUGS (8)
  1. INCIVEK [Suspect]
     Indication: HEPATITIS C
     Route: 048
     Dates: start: 20120208, end: 20120501
  2. RIBAVARIN [Concomitant]
     Indication: HEPATITIS C
     Route: 048
     Dates: start: 20120208
  3. AZITHROMYCIN [Concomitant]
  4. PRAVASTATIN [Concomitant]
  5. PEGASYS [Concomitant]
     Indication: HEPATITIS C
     Route: 058
     Dates: start: 20120208
  6. ANTIHISTAMINE [Concomitant]
  7. AMBIEN [Concomitant]
  8. DICLOFENAC SODIUM [Concomitant]

REACTIONS (10)
  - PLATELET COUNT DECREASED [None]
  - RED BLOOD CELL COUNT DECREASED [None]
  - PHOTOPHOBIA [None]
  - HEADACHE [None]
  - APHONIA [None]
  - WHITE BLOOD CELL COUNT DECREASED [None]
  - RASH PAPULAR [None]
  - HAEMORRHOIDS [None]
  - DIARRHOEA [None]
  - PRURITUS [None]
